FAERS Safety Report 17352462 (Version 1)
Quarter: 2020Q1

REPORT INFORMATION
  Report Type: Spontaneous
  Country: ES (occurrence: ES)
  Receive Date: 20200131
  Receipt Date: 20200131
  Transmission Date: 20200409
  Serious: Yes (Hospitalization)
  Sender: FDA-Public Use
  Company Number: ES-SUN PHARMACEUTICAL INDUSTRIES LTD-2020RR-235035

PATIENT
  Age: 26 Year
  Sex: Female

DRUGS (2)
  1. IBUPROFENO (1769A) [Suspect]
     Active Substance: IBUPROFEN
     Indication: PHARYNGOTONSILLITIS
     Dosage: 1-1-1-1
     Route: 048
     Dates: start: 20190410, end: 20190412
  2. AZITHROMYCIN ANHYDROUS. [Suspect]
     Active Substance: AZITHROMYCIN ANHYDROUS
     Indication: PHARYNGOTONSILLITIS
     Dosage: 500 MG DIA
     Route: 048
     Dates: start: 20190410, end: 20190412

REACTIONS (1)
  - Agranulocytosis [Recovered/Resolved]

NARRATIVE: CASE EVENT DATE: 20190412
